FAERS Safety Report 17010016 (Version 1)
Quarter: 2019Q4

REPORT INFORMATION
  Report Type: Spontaneous
  Country: US (occurrence: US)
  Receive Date: 20190930
  Receipt Date: 20190930
  Transmission Date: 20200122
  Serious: Yes (Hospitalization)
  Sender: FDA-Public Use
  Company Number: None

PATIENT
  Age: 59 Year
  Sex: Female

DRUGS (7)
  1. ONDANSETRON [Concomitant]
     Active Substance: ONDANSETRON
  2. ESCITALOPRAM [Concomitant]
     Active Substance: ESCITALOPRAM OXALATE
  3. PYRIDOSTIGM [Concomitant]
  4. RILUZOLE. [Suspect]
     Active Substance: RILUZOLE
     Indication: MOTOR NEURONE DISEASE
     Route: 048
     Dates: start: 20190713
  5. ALBUTEROL. [Concomitant]
     Active Substance: ALBUTEROL
  6. LEVOTHYROXIN [Concomitant]
     Active Substance: LEVOTHYROXINE
  7. OMEPRAZOLE. [Concomitant]
     Active Substance: OMEPRAZOLE

REACTIONS (1)
  - Gastroenteritis viral [None]

NARRATIVE: CASE EVENT DATE: 20190822
